FAERS Safety Report 9201169 (Version 2)
Quarter: 2013Q2

REPORT INFORMATION
  Report Type: Spontaneous
  Country: BR (occurrence: BR)
  Receive Date: 20130401
  Receipt Date: 20130513
  Transmission Date: 20140414
  Serious: No
  Sender: FDA-Public Use
  Company Number: PHHY2013BR029742

PATIENT
  Age: 18 Year
  Sex: Female

DRUGS (2)
  1. RITALINA [Suspect]
     Indication: SLEEP DISORDER
     Dosage: 2 DF, QD
     Route: 048
  2. RITALINA [Suspect]
     Indication: DECREASED ACTIVITY

REACTIONS (5)
  - Fall [Recovered/Resolved]
  - Dizziness [Recovered/Resolved]
  - Dyspnoea [Recovered/Resolved]
  - Dry mouth [Recovered/Resolved]
  - Tremor [Recovered/Resolved]
